FAERS Safety Report 23199639 (Version 1)
Quarter: 2023Q4

REPORT INFORMATION
  Report Type: Spontaneous
  Country: US (occurrence: US)
  Receive Date: 20231117
  Receipt Date: 20231117
  Transmission Date: 20240110
  Serious: No
  Sender: FDA-Public Use
  Company Number: US-Stemline Therapeutics, Inc.-2023ST002372

PATIENT
  Age: 78 Year
  Sex: Female

DRUGS (2)
  1. ORSERDU [Suspect]
     Active Substance: ELACESTRANT
     Indication: Product used for unknown indication
     Dosage: 345MG ONCE A DAY BY MOUTH.
     Route: 048
  2. ORSERDU [Suspect]
     Active Substance: ELACESTRANT
     Dosage: 86 MG, 4 TABLETS ONCE A DAY BY MOUTH.
     Route: 048
     Dates: start: 20230602

REACTIONS (2)
  - Malaise [Not Recovered/Not Resolved]
  - Localised infection [Unknown]
